FAERS Safety Report 22236816 (Version 1)
Quarter: 2023Q2

REPORT INFORMATION
  Report Type: Spontaneous
  Country: US (occurrence: US)
  Receive Date: 20230420
  Receipt Date: 20230420
  Transmission Date: 20230721
  Serious: No
  Sender: FDA-Public Use
  Company Number: US-ALLERGAN-2226063US

PATIENT
  Sex: Male
  Weight: 90.718 kg

DRUGS (1)
  1. RESTASIS [Suspect]
     Active Substance: CYCLOSPORINE
     Indication: Dry eye
     Dosage: UNK
     Route: 047
     Dates: start: 20220805

REACTIONS (2)
  - Eye irritation [Recovered/Resolved]
  - Eye pain [Unknown]

NARRATIVE: CASE EVENT DATE: 20220808
